FAERS Safety Report 18931015 (Version 2)
Quarter: 2025Q4

REPORT INFORMATION
  Report Type: Spontaneous
  Country: EU (occurrence: EU)
  Receive Date: 20210223
  Receipt Date: 20251028
  Transmission Date: 20260118
  Serious: Yes (Other)
  Sender: BAUSCH AND LOMB
  Company Number: EU-BEH-2021127052

PATIENT
  Age: 18 Year
  Sex: Male

DRUGS (7)
  1. DEXAMETHASONE [Suspect]
     Active Substance: DEXAMETHASONE
     Indication: Immune tolerance induction
     Dosage: HANNOVER PROTOCOL: 2X12 MG/M2 (DAY 1-4)
     Route: 065
  2. HUMAN IMMUNOGLOBULIN G [Suspect]
     Active Substance: HUMAN IMMUNOGLOBULIN G
     Indication: Immune tolerance induction
     Dosage: HANNOVER PROTOCOL: DAY 3-4
     Route: 042
  3. CELLCEPT [Suspect]
     Active Substance: MYCOPHENOLATE MOFETIL
     Indication: Immune tolerance induction
     Route: 065
  4. RITUXIMAB [Suspect]
     Active Substance: RITUXIMAB
     Indication: Immune tolerance induction
     Dosage: HANNOVER PROTOCOL: 375 MG/M2/D; WEEKLY
     Route: 065
     Dates: start: 2006
  5. RITUXIMAB [Suspect]
     Active Substance: RITUXIMAB
     Dosage: HANNOVER PROTOCOL: 375 MG/M2/D; WEEKLY
     Route: 065
     Dates: start: 2010
  6. ANTIHEMOPHILIC FACTOR HUMAN [Suspect]
     Active Substance: ANTIHEMOPHILIC FACTOR HUMAN
     Indication: Immune tolerance induction
     Dosage: HANNOVER PROTOCOL: 2X100 U/KG/D
     Route: 065
  7. ANTIHEMOPHILIC FACTOR HUMAN [Suspect]
     Active Substance: ANTIHEMOPHILIC FACTOR HUMAN
     Indication: Acquired haemophilia
     Dosage: HANNOVER PROTOCOL: 2X50 U/KG/D
     Route: 065

REACTIONS (4)
  - Sepsis [Unknown]
  - Paronychia [Unknown]
  - Psychotic disorder [Unknown]
  - Therapy partial responder [Unknown]
